FAERS Safety Report 21395773 (Version 1)
Quarter: 2022Q3

REPORT INFORMATION
  Report Type: Report from Study
  Country: ES (occurrence: ES)
  Receive Date: 20220930
  Receipt Date: 20220930
  Transmission Date: 20221027
  Serious: Yes (Other)
  Sender: FDA-Public Use
  Company Number: ES-JNJFOC-20220757245

PATIENT
  Age: 65 Year
  Sex: Male

DRUGS (1)
  1. IMBRUVICA [Suspect]
     Active Substance: IBRUTINIB
     Indication: Chronic lymphocytic leukaemia
     Route: 048
     Dates: start: 20210601, end: 20220727

REACTIONS (2)
  - Neutropenia [Recovered/Resolved with Sequelae]
  - Oral infection [Recovered/Resolved]

NARRATIVE: CASE EVENT DATE: 20220701
